FAERS Safety Report 5866498-7 (Version None)
Quarter: 2008Q3

REPORT INFORMATION
  Report Type: 
  Country: None (occurrence: None)
  Receive Date: 20080902
  Receipt Date: 20080902
  Transmission Date: 20090109
  Serious: Yes (Hospitalization)
  Sender: FDA-Public Use
  Company Number: PHEH1998US02978

PATIENT
  Sex: Male
  Weight: 130 kg

DRUGS (1)
  1. SANDIMMUNE [Suspect]
     Route: 048
     Dates: start: 19970817

REACTIONS (4)
  - CYTOMEGALOVIRUS INFECTION [None]
  - DYSPNOEA [None]
  - PAIN [None]
  - PNEUMONIA [None]
